FAERS Safety Report 24332739 (Version 1)
Quarter: 2024Q3

REPORT INFORMATION
  Report Type: Spontaneous
  Country: KR (occurrence: KR)
  Receive Date: 20240918
  Receipt Date: 20240918
  Transmission Date: 20241017
  Serious: Yes (Life-Threatening, Hospitalization, Other)
  Sender: AMNEAL
  Company Number: KR-AMNEAL PHARMACEUTICALS-2024-AMRX-03388

PATIENT
  Age: 45 Year
  Sex: Male

DRUGS (3)
  1. ALYMSYS [Suspect]
     Active Substance: BEVACIZUMAB-MALY
     Indication: Hepatocellular carcinoma
     Dosage: 15 MG/KG
     Route: 065
  2. ATEZOLIZUMAB [Suspect]
     Active Substance: ATEZOLIZUMAB
     Indication: Hepatocellular carcinoma
     Dosage: 1200 MG
     Route: 065
  3. SORAFENIB [Concomitant]
     Active Substance: SORAFENIB
     Indication: Hepatocellular carcinoma
     Dosage: UNK
     Route: 065

REACTIONS (2)
  - Encephalitis [Recovering/Resolving]
  - Immune-mediated neuropathy [Recovering/Resolving]
